FAERS Safety Report 20037142 (Version 1)
Quarter: 2021Q4

REPORT INFORMATION
  Report Type: Spontaneous
  Country: US (occurrence: None)
  Receive Date: 20211105
  Receipt Date: 20211105
  Transmission Date: 20220303
  Serious: Yes (Other)
  Sender: FDA-Public Use
  Company Number: US-ROCHE-2946916

PATIENT

DRUGS (1)
  1. TNKASE [Suspect]
     Active Substance: TENECTEPLASE
     Indication: Cerebrovascular accident
     Dosage: START DATE UNKNOWN  ONE TIME DOSE ;ONGOING: NO
     Route: 065

REACTIONS (2)
  - Cerebral haemorrhage [Unknown]
  - Off label use [Unknown]
